FAERS Safety Report 7166368-0 (Version None)
Quarter: 2010Q4

REPORT INFORMATION
  Report Type: 
  Country: None (occurrence: None)
  Receive Date: 20101216
  Receipt Date: 20101019
  Transmission Date: 20110411
  Serious: No
  Sender: FDA-Public Use
  Company Number: US-ABBOTT-10P-163-0679462-00

PATIENT
  Sex: Female
  Weight: 81.72 kg

DRUGS (9)
  1. TRILIPIX [Suspect]
     Indication: BLOOD CHOLESTEROL INCREASED
     Dates: start: 20100901, end: 20101010
  2. TRILIPIX [Suspect]
     Indication: BLOOD TRIGLYCERIDES INCREASED
  3. NEORAL [Concomitant]
     Indication: HEART TRANSPLANT
  4. PREDNISONE [Concomitant]
     Indication: HEART TRANSPLANT
  5. HYDROCHLOROTHIAZIDE [Concomitant]
     Indication: HYPERTENSION
  6. HYDROCHLOROTHIAZIDE [Concomitant]
     Indication: DIURETIC THERAPY
  7. BENICAR [Concomitant]
     Indication: HYPERTENSION
  8. VITAMINS [Concomitant]
     Indication: VITAMIN SUPPLEMENTATION
  9. MAGNESIUM [Concomitant]
     Indication: MINERAL SUPPLEMENTATION

REACTIONS (1)
  - PALPITATIONS [None]
